FAERS Safety Report 7290006-X (Version None)
Quarter: 2011Q1

REPORT INFORMATION
  Report Type: 
  Country: None (occurrence: None)
  Receive Date: 20110214
  Receipt Date: 20110203
  Transmission Date: 20110831
  Serious: Yes (Death)
  Sender: FDA-Public Use
  Company Number: AR-JNJFOC-20110203053

PATIENT
  Sex: Female

DRUGS (1)
  1. KETOCONAZOLE [Suspect]
     Indication: CUSHING'S SYNDROME
     Dosage: IN SINGLE OR FRACTIONATED DOSES EVERY 8 OR 12 HOURS DOSES RANGING FROM 200 MG TO 1200 MG DAILY
     Route: 048

REACTIONS (1)
  - HEPATIC FAILURE [None]
